FAERS Safety Report 8374751-0 (Version None)
Quarter: 2012Q2

REPORT INFORMATION
  Report Type: 
  Country: None (occurrence: None)
  Receive Date: 20120521
  Receipt Date: 20120508
  Transmission Date: 20120825
  Serious: Yes (Hospitalization)
  Sender: FDA-Public Use
  Company Number: US-JNJFOC-20120407908

PATIENT
  Sex: Female
  Weight: 91.17 kg

DRUGS (5)
  1. REMICADE [Suspect]
     Indication: RHEUMATOID ARTHRITIS
     Route: 042
     Dates: start: 20110901, end: 20111201
  2. METHOTREXATE [Concomitant]
     Route: 065
  3. TRAMADOL HCL [Concomitant]
     Route: 065
  4. PREDNISONE [Concomitant]
     Route: 065
  5. LISINOPRIL [Concomitant]
     Route: 065

REACTIONS (2)
  - ARTHRALGIA [None]
  - ARTHROPATHY [None]
